FAERS Safety Report 17367344 (Version 1)
Quarter: 2020Q1

REPORT INFORMATION
  Report Type: Spontaneous
  Country: US (occurrence: US)
  Receive Date: 20200204
  Receipt Date: 20200204
  Transmission Date: 20200409
  Serious: Yes (Life-Threatening, Hospitalization)
  Sender: FDA-Public Use
  Company Number: NVSC2020US027459

PATIENT
  Age: 13 Year
  Sex: Male
  Weight: 51 kg

DRUGS (1)
  1. NELARABINE [Suspect]
     Active Substance: NELARABINE
     Indication: T-CELL TYPE ACUTE LEUKAEMIA
     Dosage: 1000 MG, QD
     Route: 042
     Dates: start: 20191214

REACTIONS (6)
  - Mental status changes [Not Recovered/Not Resolved]
  - Seizure [Not Recovered/Not Resolved]
  - Neurotoxicity [Not Recovered/Not Resolved]
  - Areflexia [Not Recovered/Not Resolved]
  - Sensory loss [Not Recovered/Not Resolved]
  - Peripheral sensory neuropathy [Not Recovered/Not Resolved]

NARRATIVE: CASE EVENT DATE: 20191220
